FAERS Safety Report 7610983-4 (Version None)
Quarter: 2011Q3

REPORT INFORMATION
  Report Type: 
  Country: None (occurrence: None)
  Receive Date: 20110715
  Receipt Date: 20110712
  Transmission Date: 20111222
  Serious: Yes (Other)
  Sender: FDA-Public Use
  Company Number: GB-PFIZER INC-2011157949

PATIENT
  Age: 23 Year
  Sex: Female

DRUGS (3)
  1. MIFEPRISTONE (MIFEPREX) [Suspect]
     Indication: ABORTION INDUCED
     Dosage: 600 MG, 1X/DAY
     Route: 048
     Dates: start: 20110615, end: 20110615
  2. MISOPROSTOL [Suspect]
     Indication: ABORTION INDUCED
     Dosage: 400 UG, UNK
     Route: 067
  3. MIFEPRISTONE (MIFEPREX) [Suspect]
     Dosage: 600 MG, UNK
     Route: 048
     Dates: start: 20110601, end: 20110601

REACTIONS (4)
  - INCORRECT DOSE ADMINISTERED [None]
  - INCORRECT ROUTE OF DRUG ADMINISTRATION [None]
  - OFF LABEL USE [None]
  - INDUCED ABORTION FAILED [None]
